FAERS Safety Report 4481281-5 (Version None)
Quarter: 2004Q4

REPORT INFORMATION
  Report Type: 
  Country: None (occurrence: None)
  Receive Date: 20040923
  Receipt Date: 20040624
  Transmission Date: 20050328
  Serious: No
  Sender: FDA-Public Use
  Company Number: USA030537470

PATIENT
  Age: 69 Year
  Sex: Female
  Weight: 48 kg

DRUGS (2)
  1. FORTEO [Suspect]
     Indication: OSTEOPOROSIS
     Dates: start: 20030512
  2. MULTIVITAMIN [Concomitant]

REACTIONS (5)
  - BREAST PAIN [None]
  - BURNING SENSATION [None]
  - FATIGUE [None]
  - INJECTION SITE ERYTHEMA [None]
  - NAUSEA [None]
